FAERS Safety Report 23164694 (Version 1)
Quarter: 2023Q4

REPORT INFORMATION
  Report Type: Report from Study
  Country: US (occurrence: US)
  Receive Date: 20231109
  Receipt Date: 20231109
  Transmission Date: 20240110
  Serious: Yes (Hospitalization)
  Sender: FDA-Public Use
  Company Number: US-MYLANLABS-2023M1117480

PATIENT
  Age: 9 Year
  Sex: Male

DRUGS (32)
  1. ARIPIPRAZOLE [Suspect]
     Active Substance: ARIPIPRAZOLE
     Indication: Disruptive mood dysregulation disorder
     Dosage: INITIAL DOSE NOT STATED
     Route: 065
  2. ARIPIPRAZOLE [Suspect]
     Active Substance: ARIPIPRAZOLE
     Indication: Attention deficit hyperactivity disorder
     Dosage: 2.5 MILLIGRAM, QD, EVERY EVENING
     Route: 065
  3. ARIPIPRAZOLE [Suspect]
     Active Substance: ARIPIPRAZOLE
     Indication: Major depression
     Dosage: 5 MILLIGRAM, BID
     Route: 065
  4. ARIPIPRAZOLE [Suspect]
     Active Substance: ARIPIPRAZOLE
     Indication: Psychotic symptom
     Dosage: 20 MILLIGRAM, QD
     Route: 065
  5. LAMOTRIGINE [Suspect]
     Active Substance: LAMOTRIGINE
     Indication: Disruptive mood dysregulation disorder
     Dosage: UNK
     Route: 065
  6. LAMOTRIGINE [Suspect]
     Active Substance: LAMOTRIGINE
     Indication: Attention deficit hyperactivity disorder
  7. LAMOTRIGINE [Suspect]
     Active Substance: LAMOTRIGINE
     Indication: Major depression
  8. LAMOTRIGINE [Suspect]
     Active Substance: LAMOTRIGINE
     Indication: Psychotic symptom
  9. ATOMOXETINE [Suspect]
     Active Substance: ATOMOXETINE
     Indication: Disruptive mood dysregulation disorder
     Dosage: 40 MILLIGRAM, QD, ONCE EVERY MORNING
     Route: 065
  10. ATOMOXETINE [Suspect]
     Active Substance: ATOMOXETINE
     Indication: Attention deficit hyperactivity disorder
     Dosage: 60 MILLIGRAM
     Route: 065
  11. ATOMOXETINE [Suspect]
     Active Substance: ATOMOXETINE
     Indication: Major depression
  12. ATOMOXETINE [Suspect]
     Active Substance: ATOMOXETINE
     Indication: Psychotic symptom
  13. RISPERIDONE [Suspect]
     Active Substance: RISPERIDONE
     Indication: Disruptive mood dysregulation disorder
     Dosage: 0.25 MILLIGRAM, QD, EVERY EVENING
     Route: 065
  14. RISPERIDONE [Suspect]
     Active Substance: RISPERIDONE
     Indication: Attention deficit hyperactivity disorder
  15. RISPERIDONE [Suspect]
     Active Substance: RISPERIDONE
     Indication: Major depression
  16. RISPERIDONE [Suspect]
     Active Substance: RISPERIDONE
     Indication: Psychotic symptom
  17. CITALOPRAM [Concomitant]
     Active Substance: CITALOPRAM HYDROBROMIDE
     Indication: Disruptive mood dysregulation disorder
     Dosage: 5 MILLIGRAM, QD, ONCE EVERY MORNING
     Route: 065
  18. CITALOPRAM [Concomitant]
     Active Substance: CITALOPRAM HYDROBROMIDE
     Indication: Attention deficit hyperactivity disorder
     Dosage: 20 MILLIGRAM
     Route: 065
  19. CITALOPRAM [Concomitant]
     Active Substance: CITALOPRAM HYDROBROMIDE
     Indication: Major depression
  20. CITALOPRAM [Concomitant]
     Active Substance: CITALOPRAM HYDROBROMIDE
     Indication: Psychotic symptom
  21. GUANFACINE [Concomitant]
     Active Substance: GUANFACINE
     Indication: Disruptive mood dysregulation disorder
     Dosage: 3 MILLIGRAM, QD, EVERY EVENING, EXTENDED-RELEASE
     Route: 065
  22. GUANFACINE [Concomitant]
     Active Substance: GUANFACINE
     Indication: Attention deficit hyperactivity disorder
  23. GUANFACINE [Concomitant]
     Active Substance: GUANFACINE
     Indication: Major depression
  24. GUANFACINE [Concomitant]
     Active Substance: GUANFACINE
     Indication: Psychotic symptom
  25. MELATONIN [Concomitant]
     Active Substance: MELATONIN
     Indication: Disruptive mood dysregulation disorder
     Dosage: 5 MILLIGRAM, QD, EVERY EVENING
     Route: 065
  26. MELATONIN [Concomitant]
     Active Substance: MELATONIN
     Indication: Attention deficit hyperactivity disorder
  27. MELATONIN [Concomitant]
     Active Substance: MELATONIN
     Indication: Major depression
  28. MELATONIN [Concomitant]
     Active Substance: MELATONIN
     Indication: Psychotic symptom
  29. DIVALPROEX SODIUM [Concomitant]
     Active Substance: DIVALPROEX SODIUM
     Indication: Disruptive mood dysregulation disorder
     Dosage: 125 MILLIGRAM, QD, INITIALLY GIVEN EVERY MORNING AND LATER EVERY AFTERNOON
     Route: 065
  30. DIVALPROEX SODIUM [Concomitant]
     Active Substance: DIVALPROEX SODIUM
     Indication: Attention deficit hyperactivity disorder
     Dosage: UNK, DOSE WAS INCREASED LATER
     Route: 065
  31. DIVALPROEX SODIUM [Concomitant]
     Active Substance: DIVALPROEX SODIUM
     Indication: Major depression
  32. DIVALPROEX SODIUM [Concomitant]
     Active Substance: DIVALPROEX SODIUM
     Indication: Psychotic symptom

REACTIONS (4)
  - Drug ineffective [Unknown]
  - Drug ineffective for unapproved indication [Unknown]
  - Blood triglycerides increased [Unknown]
  - Off label use [Unknown]
